FAERS Safety Report 7291751-2 (Version None)
Quarter: 2011Q1

REPORT INFORMATION
  Report Type: 
  Country: None (occurrence: None)
  Receive Date: 20110209
  Receipt Date: 20110209
  Transmission Date: 20110831
  Serious: Yes (Other)
  Sender: FDA-Public Use
  Company Number: None

PATIENT
  Age: 65 Year
  Sex: Male
  Weight: 90.7194 kg

DRUGS (1)
  1. ZITHROMAX [Suspect]
     Indication: POST PROCEDURAL INFECTION
     Dosage: 250MG 1 DAILY -MORNING- PO
     Route: 048
     Dates: start: 20110114, end: 20110118

REACTIONS (6)
  - DRUG INEFFECTIVE [None]
  - URINE ODOUR ABNORMAL [None]
  - ABDOMINAL PAIN UPPER [None]
  - DIARRHOEA [None]
  - ABDOMINAL DISCOMFORT [None]
  - FLATULENCE [None]
